FAERS Safety Report 20095310 (Version 7)
Quarter: 2023Q1

REPORT INFORMATION
  Report Type: Report from Study
  Country: GB (occurrence: GB)
  Receive Date: 20211122
  Receipt Date: 20230324
  Transmission Date: 20230418
  Serious: Yes (Death, Hospitalization)
  Sender: FDA-Public Use
  Company Number: GB-GLAXOSMITHKLINE-GB2021GSK235048

PATIENT

DRUGS (15)
  1. BELANTAMAB MAFODOTIN [Suspect]
     Active Substance: BELANTAMAB MAFODOTIN
     Indication: Plasma cell myeloma
     Dosage: 2.5 MG/KG, EVERY 3 WEEKS
     Route: 042
     Dates: start: 20210309, end: 20210914
  2. BORTEZOMIB [Suspect]
     Active Substance: BORTEZOMIB
     Indication: Plasma cell myeloma
     Dosage: UNK, DEXAMETHASONE 6 MG DAILY
     Dates: start: 20210309, end: 20210924
  3. AMITRIPTYLINE [Concomitant]
     Active Substance: AMITRIPTYLINE
     Indication: Depressed mood
     Dosage: 10 MG, TID
     Route: 048
     Dates: start: 2020
  4. BISOPROLOL [Concomitant]
     Active Substance: BISOPROLOL
     Indication: Atrial fibrillation
     Dosage: 2.5 MG, QD
     Route: 048
     Dates: start: 2012
  5. CETIRIZINE [Concomitant]
     Active Substance: CETIRIZINE HYDROCHLORIDE
     Indication: Seasonal allergy
     Dosage: 10 MG, PRN
     Route: 048
     Dates: start: 2020
  6. FLECAINIDE [Concomitant]
     Active Substance: FLECAINIDE
     Indication: Atrial fibrillation
     Dosage: 100 MG, BID
     Route: 048
     Dates: start: 2011
  7. LEVOTHYROXINE [Concomitant]
     Active Substance: LEVOTHYROXINE
     Indication: Hypothyroidism
     Dosage: 150 UG, QD
     Route: 048
     Dates: start: 1972
  8. OMEPRAZOLE [Concomitant]
     Active Substance: OMEPRAZOLE
     Indication: Dyspepsia
     Dosage: 20 MG, QD
     Route: 048
     Dates: start: 2010
  9. TRAMADOL [Concomitant]
     Active Substance: TRAMADOL
     Indication: Arthralgia
     Dosage: 50 MG, PRN
     Route: 048
     Dates: start: 2021
  10. FOLIC ACID [Concomitant]
     Active Substance: FOLIC ACID
     Indication: Supplementation therapy
     Dosage: UNK
     Route: 048
     Dates: start: 2018
  11. ACETAMINOPHEN [Concomitant]
     Active Substance: ACETAMINOPHEN
     Indication: Arthralgia
     Dosage: 1 G, PRN
     Route: 048
     Dates: start: 2021
  12. VITAMIN C + D [Concomitant]
     Indication: Supplementation therapy
     Dosage: UNK
     Route: 048
     Dates: start: 2020
  13. SELENIUM [Concomitant]
     Active Substance: SELENIUM
     Indication: Supplementation therapy
     Dosage: UNK
     Route: 048
     Dates: start: 2020
  14. ENOXAPARIN [Concomitant]
     Active Substance: ENOXAPARIN
     Indication: Prophylaxis
     Dosage: 0.75 MG/KG, BID
     Route: 058
     Dates: start: 20210319
  15. DEXAMETHASONE [Suspect]
     Active Substance: DEXAMETHASONE

REACTIONS (1)
  - COVID-19 pneumonia [Fatal]

NARRATIVE: CASE EVENT DATE: 20211110
